FAERS Safety Report 11156636 (Version 1)
Quarter: 2015Q2

REPORT INFORMATION
  Report Type: Report from Study
  Country: FR (occurrence: FR)
  Receive Date: 20150602
  Receipt Date: 20150602
  Transmission Date: 20150821
  Serious: Yes (Hospitalization)
  Sender: FDA-Public Use
  Company Number: FR-GLAXOSMITHKLINE-FR2015GSK075452

PATIENT
  Age: 31 Year
  Sex: Male

DRUGS (7)
  1. INSPRA [Concomitant]
     Active Substance: EPLERENONE
  2. OMEGA-3-ACID ETHYL ESTERS. [Suspect]
     Active Substance: OMEGA-3-ACID ETHYL ESTERS
     Indication: ISCHAEMIC HEART DISEASE PROPHYLAXIS
     Dosage: UNK
     Dates: start: 20080514, end: 20100512
  3. KARDEGIC [Concomitant]
     Active Substance: ASPIRIN LYSINE
  4. SIMVASTATIN. [Concomitant]
     Active Substance: SIMVASTATIN
  5. PLAVIX [Concomitant]
     Active Substance: CLOPIDOGREL BISULFATE
  6. RAMIPRIL. [Concomitant]
     Active Substance: RAMIPRIL
  7. SELOZOK [Concomitant]
     Active Substance: METOPROLOL SUCCINATE

REACTIONS (1)
  - Stress [Unknown]
